FAERS Safety Report 6837554-1 (Version None)
Quarter: 2010Q3

REPORT INFORMATION
  Report Type: 
  Country: None (occurrence: None)
  Receive Date: 20100713
  Receipt Date: 20070516
  Transmission Date: 20110219
  Serious: Yes (Other)
  Sender: FDA-Public Use
  Company Number: US-PFIZER INC-2007040461

PATIENT
  Sex: Male
  Weight: 87.727 kg

DRUGS (3)
  1. CHANTIX [Suspect]
     Indication: SMOKING CESSATION THERAPY
     Dates: start: 20070315
  2. ALCOHOL [Suspect]
  3. LIPITOR [Concomitant]

REACTIONS (2)
  - FALL [None]
  - SYNCOPE [None]
